FAERS Safety Report 15753797 (Version 11)
Quarter: 2020Q2

REPORT INFORMATION
  Report Type: Report from Study
  Country: None (occurrence: NL)
  Receive Date: 20181222
  Receipt Date: 20200423
  Transmission Date: 20200713
  Serious: Yes (Other)
  Sender: FDA-Public Use
  Company Number: NL-ABBVIE-18S-114-2595746-00

PATIENT
  Age: 63 Year
  Sex: Male

DRUGS (8)
  1. ROPINIROLE. [Concomitant]
     Active Substance: ROPINIROLE
     Indication: PARKINSON^S DISEASE
     Dosage: DECREASED TO 3 TIMES 1 MG.
  2. ROPINIROLE. [Concomitant]
     Active Substance: ROPINIROLE
     Dosage: DECREASED TO 3 TIMES 1 MG
  3. PARACETAMOL [Concomitant]
     Active Substance: ACETAMINOPHEN
     Indication: PRODUCT USED FOR UNKNOWN INDICATION
  4. FUCIDINE [Concomitant]
     Indication: PRODUCT USED FOR UNKNOWN INDICATION
     Dates: start: 20190309
  5. FUCIDINE [Concomitant]
     Indication: STOMA SITE REACTION
  6. DUODOPA [Suspect]
     Active Substance: CARBIDOPA\LEVODOPA
     Indication: PARKINSON^S DISEASE
     Dosage: 16 HOUR TREATMENT.ED AT THE END OF MORNING AND AFTERNOON. MD11.0,CD4.7,ED3.0(CD INCREASED)
     Route: 050
     Dates: start: 20181119
  7. LEVODOPA/CARBIDOPA [Concomitant]
     Active Substance: CARBIDOPA\LEVODOPA
     Indication: PARKINSON^S DISEASE
  8. LAXANS [Concomitant]
     Indication: ABNORMAL FAECES

REACTIONS (43)
  - Gastrointestinal haemorrhage [Not Recovered/Not Resolved]
  - Urinary tract infection [Recovered/Resolved]
  - Gastrointestinal disorder [Unknown]
  - Gastrointestinal stoma complication [Recovered/Resolved]
  - Stoma site erythema [Recovered/Resolved]
  - Stoma site discomfort [Recovered/Resolved]
  - Gait disturbance [Not Recovered/Not Resolved]
  - Coronavirus infection [Recovering/Resolving]
  - Somnolence [Not Recovered/Not Resolved]
  - Memory impairment [Unknown]
  - Fibroma [Recovered/Resolved]
  - Stoma site induration [Not Recovered/Not Resolved]
  - Stoma site erythema [Unknown]
  - Bradykinesia [Not Recovered/Not Resolved]
  - Nocturia [Not Recovered/Not Resolved]
  - Asthenia [Not Recovered/Not Resolved]
  - Urinary tract disorder [Not Recovered/Not Resolved]
  - Dyskinesia [Recovered/Resolved]
  - Stoma site discharge [Recovered/Resolved]
  - Mobility decreased [Not Recovered/Not Resolved]
  - Medical device pain [Not Recovered/Not Resolved]
  - Freezing phenomenon [Not Recovered/Not Resolved]
  - Insomnia [Recovered/Resolved]
  - Dyskinesia [Not Recovered/Not Resolved]
  - Fibroma [Unknown]
  - Muscle rigidity [Not Recovered/Not Resolved]
  - Medical device site scab [Recovered/Resolved]
  - Stoma site pain [Recovering/Resolving]
  - Fatigue [Recovered/Resolved]
  - Hallucination [Recovered/Resolved]
  - Abnormal dreams [Not Recovered/Not Resolved]
  - Abdominal rigidity [Not Recovered/Not Resolved]
  - Stoma site extravasation [Recovered/Resolved]
  - Stoma site infection [Recovered/Resolved]
  - On and off phenomenon [Not Recovered/Not Resolved]
  - Speech disorder [Not Recovered/Not Resolved]
  - Musculoskeletal stiffness [Not Recovered/Not Resolved]
  - Reduced facial expression [Not Recovered/Not Resolved]
  - Stoma site odour [Recovered/Resolved]
  - Abdominal pain [Not Recovered/Not Resolved]
  - Hallucination [Not Recovered/Not Resolved]
  - Device occlusion [Unknown]
  - Fatigue [Not Recovered/Not Resolved]

NARRATIVE: CASE EVENT DATE: 2018
